FAERS Safety Report 6783702-1 (Version None)
Quarter: 2010Q2

REPORT INFORMATION
  Report Type: 
  Country: None (occurrence: None)
  Receive Date: 20100622
  Receipt Date: 20100614
  Transmission Date: 20101027
  Serious: Yes (Death, Other)
  Sender: FDA-Public Use
  Company Number: BR-ROCHE-709872

PATIENT
  Sex: Male
  Weight: 68 kg

DRUGS (4)
  1. PEGASYS [Suspect]
     Indication: HEPATITIS C
     Dosage: DOSE REPORTED: 180 UG/0.5 ML
     Route: 058
     Dates: start: 20091001, end: 20100531
  2. RIBAVIRIN [Concomitant]
     Indication: HEPATITIS C
     Route: 048
     Dates: start: 20091001, end: 20100531
  3. AMITRIPTYLINE HCL [Concomitant]
     Indication: DEPRESSION
     Dosage: CO-INDICATION: INDUCE SLEEP.
     Route: 048
     Dates: start: 20070101, end: 20100531
  4. LITHIUM CARBONATE [Concomitant]
     Indication: MENTAL DISORDER
     Dates: start: 20070101, end: 20100531

REACTIONS (4)
  - ANAEMIA [None]
  - INFECTION [None]
  - MULTI-ORGAN FAILURE [None]
  - URINARY TRACT INFECTION [None]
